FAERS Safety Report 7019843-3 (Version None)
Quarter: 2010Q3

REPORT INFORMATION
  Report Type: 
  Country: None (occurrence: None)
  Receive Date: 20100922
  Receipt Date: 20100913
  Transmission Date: 20110219
  Serious: Yes (Hospitalization, Other)
  Sender: FDA-Public Use
  Company Number: 018717

PATIENT
  Sex: Female
  Weight: 91.5 kg

DRUGS (2)
  1. CERTOLIZUMAB PEGOL (CERTOLIZUMAB PEGOL) [Suspect]
     Indication: RHEUMATOID ARTHRITIS
     Dosage: 200 MG 1X/2 WEEKS, STUDY CDP870-050 SUBCUTANEOUS , 400 MG 1X/2 WEEKS SUBCUTANEOUS
     Route: 058
     Dates: start: 20060119, end: 20060706
  2. CERTOLIZUMAB PEGOL (CERTOLIZUMAB PEGOL) [Suspect]
     Indication: RHEUMATOID ARTHRITIS
     Dosage: 200 MG 1X/2 WEEKS, STUDY CDP870-050 SUBCUTANEOUS , 400 MG 1X/2 WEEKS SUBCUTANEOUS
     Route: 058
     Dates: start: 20060706, end: 20100908

REACTIONS (2)
  - ARTHROPOD BITE [None]
  - LYME DISEASE [None]
